FAERS Safety Report 4338369-9 (Version None)
Quarter: 2004Q2

REPORT INFORMATION
  Report Type: 
  Country: None (occurrence: None)
  Receive Date: 20040407
  Receipt Date: 20040322
  Transmission Date: 20050107
  Serious: Yes (Hospitalization)
  Sender: FDA-Public Use
  Company Number: MEDI-0001591

PATIENT
  Age: 2 Month
  Sex: Male
  Weight: 4.61 kg

DRUGS (2)
  1. SYNAGIS [Suspect]
     Indication: ANTIVIRAL PROPHYLAXIS
     Dosage: 70 MG, 1 IN 30 D, INTRA-MUSCULAR
     Route: 030
     Dates: start: 20040130, end: 20040319
  2. SYNAGIS [Suspect]
     Indication: ANTIVIRAL PROPHYLAXIS
     Dosage: 70 MG, 1 IN 30 D, INTRA-MUSCULAR
     Route: 030
     Dates: start: 20040130

REACTIONS (2)
  - HYPERHIDROSIS [None]
  - PALLOR [None]
